FAERS Safety Report 6597693-X (Version None)
Quarter: 2010Q1

REPORT INFORMATION
  Report Type: 
  Country: None (occurrence: None)
  Receive Date: 20100216
  Receipt Date: 20100202
  Transmission Date: 20100710
  Serious: Yes (Hospitalization)
  Sender: FDA-Public Use
  Company Number: 230068J10BRA

PATIENT
  Age: 26 Year
  Sex: Female

DRUGS (2)
  1. REBIF [Suspect]
     Indication: RELAPSING-REMITTING MULTIPLE SCLEROSIS
     Dosage: 44 MCG, 3 IN 1 WEEKS
     Dates: start: 20100118
  2. YASMIN [Concomitant]

REACTIONS (20)
  - ABDOMINAL DISTENSION [None]
  - BRADYPHRENIA [None]
  - DIZZINESS [None]
  - FATIGUE [None]
  - FEELING OF DESPAIR [None]
  - GAIT DISTURBANCE [None]
  - HYPERAESTHESIA [None]
  - HYPOAESTHESIA [None]
  - MALAISE [None]
  - MUSCLE SPASMS [None]
  - MUSCULAR WEAKNESS [None]
  - MUSCULOSKELETAL DISCOMFORT [None]
  - NAUSEA [None]
  - PALLOR [None]
  - PERIPHERAL COLDNESS [None]
  - PYREXIA [None]
  - RHINORRHOEA [None]
  - SYNCOPE [None]
  - TEMPERATURE INTOLERANCE [None]
  - TREMOR [None]
